FAERS Safety Report 6345506-3 (Version None)
Quarter: 2009Q3

REPORT INFORMATION
  Report Type: 
  Country: None (occurrence: None)
  Receive Date: 20090821
  Receipt Date: 20090616
  Transmission Date: 20100115
  Serious: No
  Sender: FDA-Public Use
  Company Number: 8047156

PATIENT
  Age: 45 Year
  Sex: Female

DRUGS (12)
  1. CIMZIA [Suspect]
     Indication: CROHN'S DISEASE
     Dosage: 400 MG 1/2W SC
     Route: 058
     Dates: start: 20080903, end: 20081204
  2. CIMZIA [Suspect]
     Indication: CROHN'S DISEASE
     Dosage: 400 MG /M SC
     Route: 058
     Dates: start: 20090106, end: 20090410
  3. VICODIN [Concomitant]
  4. BUSPAR [Concomitant]
  5. BENTYL [Concomitant]
  6. TYLENOL (CAPLET) [Concomitant]
  7. CIMZIA [Suspect]
     Indication: CROHN'S DISEASE
     Dosage: 400  MG SC
     Route: 058
     Dates: start: 20090420
  8. BENADRYL [Concomitant]
  9. POTASSIUM CHLORIDE [Concomitant]
  10. PRILOSEC [Concomitant]
  11. PHENERGAN [Concomitant]
  12. MERCAPTOPURINE [Concomitant]

REACTIONS (5)
  - ABDOMINAL PAIN [None]
  - DIARRHOEA [None]
  - FATIGUE [None]
  - FUNGAL INFECTION [None]
  - PAIN [None]
